FAERS Safety Report 25049734 (Version 2)
Quarter: 2025Q1

REPORT INFORMATION
  Report Type: Spontaneous
  Country: JP (occurrence: JP)
  Receive Date: 20250307
  Receipt Date: 20250320
  Transmission Date: 20250409
  Serious: Yes (Death, Other)
  Sender: RANBAXY
  Company Number: JP-SUN PHARMACEUTICAL INDUSTRIES LTD-2025RR-498293

PATIENT
  Age: 65 Year
  Sex: Male
  Weight: 57.9 kg

DRUGS (6)
  1. MELPHALAN [Suspect]
     Active Substance: MELPHALAN
     Indication: Primary amyloidosis
     Route: 065
  2. DEXAMETHASONE [Suspect]
     Active Substance: DEXAMETHASONE
     Indication: Primary amyloidosis
     Route: 065
  3. AZACITIDINE [Suspect]
     Active Substance: AZACITIDINE
     Indication: Leukaemia
     Route: 065
  4. MITOXANTRONE [Suspect]
     Active Substance: MITOXANTRONE HYDROCHLORIDE
     Indication: Primary amyloidosis
     Route: 065
  5. CYTARABINE [Suspect]
     Active Substance: CYTARABINE
     Indication: Primary amyloidosis
     Route: 065
  6. VENETOCLAX [Suspect]
     Active Substance: VENETOCLAX
     Indication: Primary amyloidosis
     Route: 065

REACTIONS (3)
  - Acute leukaemia [Fatal]
  - Disease progression [Fatal]
  - Disease recurrence [Unknown]

NARRATIVE: CASE EVENT DATE: 20230601
